FAERS Safety Report 4324559-8 (Version None)
Quarter: 2004Q1

REPORT INFORMATION
  Report Type: 
  Country: None (occurrence: None)
  Receive Date: 20040326
  Receipt Date: 20040216
  Transmission Date: 20041129
  Serious: Yes (Hospitalization, Other)
  Sender: FDA-Public Use
  Company Number: PHRM2004FR00883

PATIENT
  Age: 70 Year
  Sex: Female
  Weight: 65 kg

DRUGS (5)
  1. COTAREG [Suspect]
     Indication: HYPERTENSION
     Dosage: 1 DF, QD
     Route: 048
     Dates: start: 20031218, end: 20031225
  2. SOTALOL HCL [Concomitant]
     Indication: SUPRAVENTRICULAR EXTRASYSTOLES
     Dosage: 80 MG, DAILY
     Route: 048
     Dates: start: 20020115
  3. LESCOL [Concomitant]
     Indication: HYPERLIPIDAEMIA
     Dosage: 80 MG, DAILY
     Route: 048
     Dates: start: 20030115
  4. METFORMINE ^MERCK^ [Concomitant]
     Indication: DIABETES MELLITUS NON-INSULIN-DEPENDENT
     Dosage: 850 MG, TID
     Route: 048
     Dates: start: 20020115
  5. MODOPAR [Concomitant]
     Indication: PARKINSON'S DISEASE

REACTIONS (18)
  - ADRENOCORTICAL INSUFFICIENCY ACUTE [None]
  - BARTTER'S SYNDROME [None]
  - CONFUSIONAL STATE [None]
  - DEHYDRATION [None]
  - ELECTROENCEPHALOGRAM ABNORMAL [None]
  - EPILEPSY [None]
  - EXTENSOR PLANTAR RESPONSE [None]
  - FALL [None]
  - FATIGUE [None]
  - FLUID IMBALANCE [None]
  - HYPONATRAEMIA [None]
  - HYPOREFLEXIA [None]
  - HYPOTHYROIDISM [None]
  - LOCALISED OEDEMA [None]
  - MALAISE [None]
  - RALES [None]
  - URINARY TRACT INFECTION [None]
  - VENTRICULAR EXTRASYSTOLES [None]
